FAERS Safety Report 6876934-5 (Version None)
Quarter: 2010Q3

REPORT INFORMATION
  Report Type: 
  Country: None (occurrence: None)
  Receive Date: 20100727
  Receipt Date: 20100713
  Transmission Date: 20110219
  Serious: Yes (Hospitalization, Other)
  Sender: FDA-Public Use
  Company Number: CH-ELI_LILLY_AND_COMPANY-CH201007003965

PATIENT
  Age: 37 Year
  Sex: Female
  Weight: 117 kg

DRUGS (14)
  1. ZYPREXA [Suspect]
     Dosage: MG, DAILY (1/D)
     Route: 048
     Dates: start: 20000501
  2. ZYPREXA [Suspect]
     Dosage: 5 MG, EACH MORNING
     Route: 048
     Dates: start: 20100601
  3. ZYPREXA [Suspect]
     Dosage: 10 MG, EACH EVENING
     Dates: start: 20100601
  4. VALPROIC ACID                      /00228502/ [Concomitant]
     Dosage: 250 MG, DAILY (1/D)
     Route: 048
     Dates: start: 20000501
  5. VALPROIC ACID                      /00228502/ [Concomitant]
     Dosage: 1000 MG, DAILY (1/D)
     Route: 048
     Dates: start: 20010501
  6. CITALOPRAM HYDROBROMIDE [Concomitant]
     Dosage: 40 MG, DAILY (1/D)
     Dates: start: 20000501
  7. RISPERDAL [Concomitant]
     Dosage: 3 MG, DAILY (1/D)
     Route: 048
     Dates: start: 20040401
  8. RISPERDAL [Concomitant]
     Dosage: 2 MG, DAILY (1/D)
     Route: 048
     Dates: start: 20071001
  9. ENTUMIN [Concomitant]
     Dosage: 40 MG, DAILY (1/D)
     Route: 048
     Dates: start: 20071001
  10. SOLIAN [Concomitant]
     Dosage: 200 MG, DAILY (1/D)
     Route: 048
     Dates: start: 20090101
  11. FLUOXETINE [Concomitant]
     Dosage: 40 MG, DAILY (1/D)
     Route: 048
     Dates: start: 20040401
  12. FLUOXETINE [Concomitant]
     Dosage: 20 MG, DAILY (1/D)
     Route: 048
     Dates: start: 20100601
  13. NATRII VALPROAS [Concomitant]
     Dosage: 500 MG, DAILY (1/D)
     Dates: start: 20061001
  14. NATRII VALPROAS [Concomitant]
     Dosage: 1000 MG, DAILY (1/D)
     Dates: start: 20080601

REACTIONS (6)
  - DEPRESSIVE SYMPTOM [None]
  - DYSLIPIDAEMIA [None]
  - GLUCOSE TOLERANCE IMPAIRED [None]
  - OBESITY [None]
  - SUICIDAL IDEATION [None]
  - SUICIDE ATTEMPT [None]
